FAERS Safety Report 10241629 (Version 1)
Quarter: 2014Q2

REPORT INFORMATION
  Report Type: Spontaneous
  Country: US (occurrence: None)
  Receive Date: 20140613
  Receipt Date: 20140613
  Transmission Date: 20141212
  Serious: Yes (Other)
  Sender: FDA-Public Use
  Company Number: BR14-183-AE

PATIENT
  Age: 53 Year
  Sex: Male
  Weight: 65.77 kg

DRUGS (5)
  1. OXY / APAP [Suspect]
     Indication: PROCEDURAL PAIN
     Dosage: 1 TAB, 6XDAY, ORAL
     Route: 048
  2. OXY / APAP [Suspect]
     Dosage: 1 TAB, 6XDAY, ORAL
     Route: 048
  3. GABAPENTIN [Concomitant]
  4. IBUPROFEN [Concomitant]
  5. AMLPIDIPINE  BESYLATE [Concomitant]

REACTIONS (8)
  - Drug ineffective [None]
  - Rash [None]
  - Hypersensitivity [None]
  - Product taste abnormal [None]
  - Dysgeusia [None]
  - General physical health deterioration [None]
  - Migraine [None]
  - Mental impairment [None]
